FAERS Safety Report 14713142 (Version 3)
Quarter: 2018Q3

REPORT INFORMATION
  Report Type: Spontaneous
  Country: US (occurrence: US)
  Receive Date: 20180404
  Receipt Date: 20180709
  Transmission Date: 20181010
  Serious: No
  Sender: FDA-Public Use
  Company Number: US-PFIZER INC-2018133720

PATIENT
  Sex: Female

DRUGS (1)
  1. VANCOMYCIN HCL [Suspect]
     Active Substance: VANCOMYCIN HYDROCHLORIDE
     Indication: SURGERY
     Dosage: UNK

REACTIONS (4)
  - Erythema [Unknown]
  - Pruritus [Unknown]
  - Chest discomfort [Unknown]
  - Drug hypersensitivity [Unknown]
